FAERS Safety Report 19182583 (Version 1)
Quarter: 2021Q2

REPORT INFORMATION
  Report Type: Spontaneous
  Country: US (occurrence: US)
  Receive Date: 20210427
  Receipt Date: 20210427
  Transmission Date: 20210717
  Serious: No
  Sender: FDA-Public Use
  Company Number: US-TARO-2020TAR00872

PATIENT

DRUGS (1)
  1. METRONIDAZOLE GEL USP, 1% [Suspect]
     Active Substance: METRONIDAZOLE
     Indication: ROSACEA
     Dosage: UNK, (APPLYING A THIN LAYER AS DIRECTED) ON FACE
     Route: 061

REACTIONS (4)
  - Drug ineffective [Unknown]
  - Skin exfoliation [Unknown]
  - Dermal absorption impaired [Unknown]
  - Drug interaction [Unknown]
